FAERS Safety Report 8726391 (Version 3)
Quarter: 2012Q4

REPORT INFORMATION
  Report Type: Report from Study
  Country: JP (occurrence: JP)
  Receive Date: 20120816
  Receipt Date: 20121101
  Transmission Date: 20130627
  Serious: Yes (Other)
  Sender: FDA-Public Use
  Company Number: JP-ASTELLAS-2012US006956

PATIENT
  Age: 65 Year
  Sex: Female
  Weight: 57 kg

DRUGS (46)
  1. ERLOTINIB TABLET [Suspect]
     Indication: ADENOCARCINOMA PANCREAS
     Dosage: 100 mg, UID/QD
     Route: 048
     Dates: start: 20120327, end: 20120515
  2. ERLOTINIB TABLET [Suspect]
     Dosage: 100 mg, UID/QD
     Route: 048
     Dates: start: 20120523, end: 20120703
  3. ERLOTINIB TABLET [Suspect]
     Dosage: 50 mg, UID/QD
     Route: 048
     Dates: start: 20120903
  4. GEMCITABINE HYDROCHLORIDE [Suspect]
     Indication: ADENOCARCINOMA PANCREAS
     Dosage: 1000 mg/m2, UID/QD
     Route: 041
     Dates: start: 20120327, end: 20120327
  5. GEMCITABINE HYDROCHLORIDE [Suspect]
     Dosage: 1000 mg/m2, UID/QD
     Route: 041
     Dates: start: 20120404, end: 20120404
  6. GEMCITABINE HYDROCHLORIDE [Suspect]
     Dosage: 1000 mg/m2, UID/QD
     Route: 041
     Dates: start: 20120411, end: 20120411
  7. GEMCITABINE HYDROCHLORIDE [Suspect]
     Dosage: 1000 mg/m2, UID/QD
     Route: 041
     Dates: start: 20120425, end: 20120425
  8. GEMCITABINE HYDROCHLORIDE [Suspect]
     Dosage: 1000 mg/m2, UID/QD
     Route: 041
     Dates: start: 20120502, end: 20120502
  9. GEMCITABINE HYDROCHLORIDE [Suspect]
     Dosage: 1000 mg/m2, UID/QD
     Route: 041
     Dates: start: 20120509, end: 20120509
  10. GEMCITABINE HYDROCHLORIDE [Suspect]
     Dosage: 1000 mg/m2, UID/QD
     Route: 041
     Dates: start: 20120523, end: 20120523
  11. GEMCITABINE HYDROCHLORIDE [Suspect]
     Dosage: 1000 mg/m2, UID/QD
     Route: 041
     Dates: start: 20120530, end: 20120530
  12. GEMCITABINE HYDROCHLORIDE [Suspect]
     Dosage: 1000 mg/m2, UID/QD
     Route: 041
     Dates: start: 20120607, end: 20120607
  13. GEMCITABINE HYDROCHLORIDE [Suspect]
     Dosage: 1000 mg/m2, UID/QD
     Route: 041
     Dates: start: 20120620, end: 20120620
  14. GEMCITABINE HYDROCHLORIDE [Suspect]
     Dosage: 1000 mg/m2, UID/QD
     Route: 041
     Dates: start: 20120627, end: 20120627
  15. GEMCITABINE HYDROCHLORIDE [Suspect]
     Dosage: 1000 mg/m2, UID/QD
     Route: 041
     Dates: start: 20120704, end: 20120704
  16. GEMCITABINE HYDROCHLORIDE [Suspect]
     Dosage: 1000 mg/m2, UID/QD
     Route: 041
     Dates: start: 20120718, end: 20120718
  17. GEMCITABINE HYDROCHLORIDE [Suspect]
     Dosage: 1000 mg/m2, UID/QD
     Route: 041
     Dates: start: 20120725, end: 20120725
  18. GEMCITABINE HYDROCHLORIDE [Suspect]
     Dosage: 1000 mg/m2, UID/QD
     Route: 041
     Dates: start: 20120801, end: 20120801
  19. GEMCITABINE HYDROCHLORIDE [Suspect]
     Dosage: 1000 mg/m2, UID/QD
     Route: 041
     Dates: start: 20120813, end: 20120813
  20. GEMCITABINE HYDROCHLORIDE [Suspect]
     Dosage: 1000 mg/m2, UID/QD
     Route: 041
     Dates: start: 20120820, end: 20120820
  21. GEMCITABINE HYDROCHLORIDE [Suspect]
     Dosage: 1000 mg/m2, UID/QD
     Route: 041
     Dates: start: 20120827, end: 20120827
  22. GEMCITABINE HYDROCHLORIDE [Suspect]
     Dosage: 1000 mg/m2, UID/QD
     Route: 041
     Dates: start: 20120910, end: 20120910
  23. GEMCITABINE HYDROCHLORIDE [Suspect]
     Dosage: 1000 mg/m2, UID/QD
     Route: 041
     Dates: start: 20120918, end: 20120918
  24. GEMCITABINE HYDROCHLORIDE [Suspect]
     Dosage: 1000 mg/m2, UID/QD
     Route: 041
     Dates: start: 20120924, end: 20120924
  25. GEMCITABINE HYDROCHLORIDE [Suspect]
     Dosage: 1000 mg/m2, UID/QD
     Route: 041
     Dates: start: 20121009, end: 20121009
  26. GEMCITABINE HYDROCHLORIDE [Suspect]
     Dosage: 1000 mg/m2, UID/QD
     Route: 041
     Dates: start: 20121015
  27. TOWAMIN [Concomitant]
     Indication: PRODUCT USED FOR UNKNOWN INDICATION
     Dosage: 100 mg, UID/QD
     Route: 048
     Dates: start: 201206
  28. LANTUS [Concomitant]
     Indication: PRODUCT USED FOR UNKNOWN INDICATION
     Dosage: 14 IU, UID/QD
     Route: 058
     Dates: start: 20120508
  29. LANTUS [Concomitant]
     Dosage: 10 IU, UID/QD
     Route: 058
     Dates: start: 20120509, end: 20120620
  30. LANTUS [Concomitant]
     Dosage: 6 IU, UID/QD
     Route: 058
     Dates: start: 20120621
  31. APIDRA [Concomitant]
     Indication: PRODUCT USED FOR UNKNOWN INDICATION
     Dosage: 24 IU, UID/QD
     Route: 058
     Dates: end: 20120508
  32. APIDRA [Concomitant]
     Dosage: 18 IU, UID/QD
     Route: 058
     Dates: start: 20120509
  33. DEXART [Concomitant]
     Indication: PROPHYLAXIS
     Dosage: 3.3 mg, UID/QD
     Route: 042
     Dates: start: 20120327, end: 20120327
  34. DEXART [Concomitant]
     Dosage: 3.3 mg, UID/QD
     Route: 042
     Dates: start: 20120404, end: 20120404
  35. DEXART [Concomitant]
     Dosage: 3.3 mg, UID/QD
     Route: 042
     Dates: start: 20120411, end: 20120411
  36. DEXART [Concomitant]
     Dosage: 3.3 mg, UID/QD
     Route: 042
     Dates: start: 20120425, end: 20120425
  37. DEXART [Concomitant]
     Dosage: 3.3 mg, UID/QD
     Route: 042
     Dates: start: 20120502, end: 20120502
  38. DEXART [Concomitant]
     Dosage: 3.3 mg, UID/QD
     Route: 042
     Dates: start: 20120509, end: 20120509
  39. DEXART [Concomitant]
     Dosage: 3.3 mg, UID/QD
     Route: 042
     Dates: start: 20120523, end: 20120523
  40. DEXART [Concomitant]
     Dosage: 3.3 mg, UID/QD
     Route: 042
     Dates: start: 20120530, end: 20120530
  41. DEXART [Concomitant]
     Dosage: 3.3 mg, UID/QD
     Route: 042
     Dates: start: 20120607, end: 20120607
  42. DEXART [Concomitant]
     Dosage: 3.3 mg, UID/QD
     Route: 042
     Dates: start: 20120620, end: 20120620
  43. DEXART [Concomitant]
     Dosage: 3.3 mg, UID/QD
     Route: 042
     Dates: start: 20120627, end: 20120627
  44. DEXART [Concomitant]
     Dosage: 3.3 mg, UID/QD
     Route: 042
     Dates: start: 20120704, end: 20120704
  45. DEXART [Concomitant]
     Dosage: 3.3 mg, UID/QD
     Route: 042
     Dates: start: 20120718, end: 20120718
  46. AMLODIN [Concomitant]
     Indication: PRODUCT USED FOR UNKNOWN INDICATION
     Dosage: 5 mg, UID/QD
     Route: 048
     Dates: start: 201206

REACTIONS (12)
  - Ulcerative keratitis [Recovered/Resolved]
  - Infection [Unknown]
  - Dermatitis acneiform [Recovered/Resolved]
  - Rash maculo-papular [Recovered/Resolved]
  - Paronychia [Recovered/Resolved]
  - Paronychia [Recovered/Resolved]
  - Stomatitis [Recovered/Resolved]
  - Dry skin [Recovered/Resolved]
  - Anaemia [Recovered/Resolved]
  - White blood cell count decreased [Recovered/Resolved]
  - Platelet count decreased [Recovered/Resolved]
  - Platelet count decreased [Recovered/Resolved]
